FAERS Safety Report 5932981-9 (Version None)
Quarter: 2008Q4

REPORT INFORMATION
  Report Type: 
  Country: None (occurrence: None)
  Receive Date: 20081023
  Receipt Date: 20060620
  Transmission Date: 20090506
  Serious: Yes (Hospitalization, Other)
  Sender: FDA-Public Use
  Company Number: 2006AL002137

PATIENT
  Sex: Female

DRUGS (9)
  1. ISOSORBIDE MONONITRATE [Suspect]
     Indication: ANGINA PECTORIS
     Dosage: 60 MG; QD; PO
     Route: 048
  2. AMITRIPTYLINE HCL [Concomitant]
  3. BETAMETHASONE [Concomitant]
  4. CHLORDIAZEPOXIDE [Concomitant]
  5. EZETIMIBE [Concomitant]
  6. NICORANDIL [Concomitant]
  7. RANITIDINE [Concomitant]
  8. XALATAN [Concomitant]
  9. FUROSEMIDE [Concomitant]

REACTIONS (3)
  - BLOOD CREATININE INCREASED [None]
  - BLOOD UREA INCREASED [None]
  - HYPOVOLAEMIA [None]
